FAERS Safety Report 24924603 (Version 1)
Quarter: 2025Q1

REPORT INFORMATION
  Report Type: Report from Study
  Country: US (occurrence: US)
  Receive Date: 20250204
  Receipt Date: 20250204
  Transmission Date: 20250408
  Serious: No
  Sender: EXELIXIS
  Company Number: US-EXELIXIS-CABO-24075181

PATIENT
  Sex: Male

DRUGS (1)
  1. CABOMETYX [Suspect]
     Active Substance: CABOZANTINIB S-MALATE
     Indication: Hepatocellular carcinoma
     Dosage: 60 MG, QD
     Route: 048

REACTIONS (11)
  - Blood pressure increased [Not Recovered/Not Resolved]
  - Retching [Unknown]
  - Oral pain [Not Recovered/Not Resolved]
  - Pruritus [Unknown]
  - Fatigue [Not Recovered/Not Resolved]
  - Decreased appetite [Unknown]
  - Alanine aminotransferase increased [Unknown]
  - Nausea [Recovering/Resolving]
  - Aspartate aminotransferase increased [Unknown]
  - Insomnia [Unknown]
  - Pain [Unknown]
